FAERS Safety Report 10392825 (Version 1)
Quarter: 2014Q3

REPORT INFORMATION
  Report Type: Spontaneous
  Country: US (occurrence: None)
  Receive Date: 20140815
  Receipt Date: 20140815
  Transmission Date: 20150326
  Serious: Yes (Hospitalization, Other)
  Sender: FDA-Public Use
  Company Number: 2009S1007626

PATIENT
  Age: 75 Year
  Sex: Female

DRUGS (5)
  1. PHOSPHO-SODA [Suspect]
     Active Substance: SODIUM PHOSPHATE, DIBASIC\SODIUM PHOSPHATE, MONOBASIC
     Indication: COLONOSCOPY
     Route: 048
     Dates: start: 20050303, end: 20050303
  2. MIACALCIN (CALCITONIN, SALMON) [Concomitant]
  3. MEVACOR (LOVASTATIN) [Concomitant]
  4. ZYRTEC [Concomitant]
     Active Substance: CETIRIZINE HYDROCHLORIDE
  5. SYNTHROID [Concomitant]
     Active Substance: LEVOTHYROXINE SODIUM

REACTIONS (30)
  - Headache [None]
  - Hypothyroidism [None]
  - Oropharyngeal pain [None]
  - Chest pain [None]
  - Dysgeusia [None]
  - Rhinitis allergic [None]
  - Nasal congestion [None]
  - Chills [None]
  - Osteoporosis [None]
  - Decreased appetite [None]
  - Abdominal pain [None]
  - Nausea [None]
  - Pain in extremity [None]
  - Hypertension [None]
  - Feeling of body temperature change [None]
  - Anaemia [None]
  - Vomiting [None]
  - Dry mouth [None]
  - Cataract operation [None]
  - Renal failure acute [None]
  - Diarrhoea [None]
  - Gout [None]
  - Blood potassium increased [None]
  - Vision blurred [None]
  - Dizziness [None]
  - Blood phosphorus increased [None]
  - Eructation [None]
  - Hypophagia [None]
  - Nephrolithiasis [None]
  - Hypercholesterolaemia [None]

NARRATIVE: CASE EVENT DATE: 20050309
